FAERS Safety Report 22519567 (Version 1)
Quarter: 2023Q2

REPORT INFORMATION
  Report Type: Spontaneous
  Country: RU (occurrence: RU)
  Receive Date: 20230605
  Receipt Date: 20230605
  Transmission Date: 20230721
  Serious: Yes (Other)
  Sender: FDA-Public Use
  Company Number: RU-BAYER-2023A074529

PATIENT
  Age: 37 Year
  Sex: Female
  Weight: 92 kg

DRUGS (1)
  1. DROSPIRENONE\ETHINYL ESTRADIOL [Suspect]
     Active Substance: DROSPIRENONE\ETHINYL ESTRADIOL
     Indication: Contraception
     Dosage: UNK
     Dates: start: 20230410, end: 20230510

REACTIONS (1)
  - Vaginal discharge [Recovered/Resolved with Sequelae]
